FAERS Safety Report 22228947 (Version 1)
Quarter: 2023Q2

REPORT INFORMATION
  Report Type: Spontaneous
  Country: JP (occurrence: JP)
  Receive Date: 20230419
  Receipt Date: 20230419
  Transmission Date: 20230721
  Serious: No
  Sender: FDA-Public Use
  Company Number: JP-PFIZER INC-PV202300070121

PATIENT

DRUGS (5)
  1. PAXLOVID [Suspect]
     Active Substance: NIRMATRELVIR\RITONAVIR
     Indication: COVID-19 treatment
     Dosage: ONLY ONE TABLET FOR THE FIRST TWO DOSES
     Route: 048
  2. PAXLOVID [Suspect]
     Active Substance: NIRMATRELVIR\RITONAVIR
     Dosage: 3 TABLETS (300 MG) PER DOSE FROM THE THIRD TIME
     Route: 048
  3. ADALAT [Concomitant]
     Active Substance: NIFEDIPINE
  4. CRESTOR [Concomitant]
     Active Substance: ROSUVASTATIN CALCIUM
     Dosage: RESUMED 3 DAYS AFTER THE END OF PAXLOVID
  5. EZETIMIBE\ROSUVASTATIN [Concomitant]
     Active Substance: EZETIMIBE\ROSUVASTATIN
     Dosage: RESUMED 3 DAYS AFTER THE END OF PAXLOVID

REACTIONS (1)
  - Incorrect dose administered [Unknown]
